FAERS Safety Report 21717478 (Version 1)
Quarter: 2022Q4

REPORT INFORMATION
  Report Type: Report from Study
  Country: US (occurrence: US)
  Receive Date: 20221212
  Receipt Date: 20221212
  Transmission Date: 20230112
  Serious: No
  Sender: FDA-Public Use
  Company Number: US-ABBVIE-4232519

PATIENT
  Sex: Female

DRUGS (1)
  1. IMBRUVICA [Suspect]
     Active Substance: IBRUTINIB
     Indication: Waldenstrom^s macroglobulinaemia
     Route: 048
     Dates: start: 20220813

REACTIONS (8)
  - Balance disorder [Unknown]
  - Fall [Unknown]
  - Gait disturbance [Unknown]
  - Muscle spasms [Unknown]
  - Sciatica [Unknown]
  - Investigation abnormal [Unknown]
  - Hypoaesthesia [Unknown]
  - Fatigue [Unknown]
